FAERS Safety Report 15752790 (Version 1)
Quarter: 2018Q4

REPORT INFORMATION
  Report Type: Spontaneous
  Country: TR (occurrence: TR)
  Receive Date: 20181221
  Receipt Date: 20181221
  Transmission Date: 20190205
  Serious: Yes (Other)
  Sender: FDA-Public Use
  Company Number: TR-JUBILANT PHARMA LTD-2018TR001383

PATIENT
  Age: 65 Year
  Sex: Male

DRUGS (3)
  1. SODIUM IODIDE I-131. [Suspect]
     Active Substance: SODIUM IODIDE I-131
     Indication: PAPILLARY THYROID CANCER
     Dosage: 150 MCI, SINGLE DOSE
  2. SODIUM IODIDE I-131. [Suspect]
     Active Substance: SODIUM IODIDE I-131
     Dosage: 150 MCI, SINGLE DOSE
     Dates: start: 201005, end: 201005
  3. SODIUM IODIDE I-131. [Suspect]
     Active Substance: SODIUM IODIDE I-131
     Dosage: 5 MCI, SINGLE DOSE
     Dates: start: 201012, end: 201012

REACTIONS (4)
  - Second primary malignancy [Unknown]
  - Precursor T-lymphoblastic lymphoma/leukaemia [Unknown]
  - Myeloproliferative neoplasm [Unknown]
  - Eosinophilia [Unknown]

NARRATIVE: CASE EVENT DATE: 201605
